FAERS Safety Report 9236897 (Version 1)
Quarter: 2013Q2

REPORT INFORMATION
  Report Type: Spontaneous
  Country: GB (occurrence: None)
  Receive Date: 20130415
  Receipt Date: 20130415
  Transmission Date: 20140414
  Serious: Yes (Other)
  Sender: FDA-Public Use
  Company Number: GER//UKI/13/0028977

PATIENT
  Age: 66 Year
  Sex: Female

DRUGS (4)
  1. FEXOFENADINE HYDROCHLORIDE [Suspect]
     Indication: PRURITUS
     Route: 048
     Dates: start: 20130328, end: 20130402
  2. PROPRANOLOL [Suspect]
     Indication: PRODUCT USED FOR UNKNOWN INDICATION
  3. FLUCLOXACILLIN SODIUM (FLUCLOXACILLIN SODIUM) [Concomitant]
  4. LISINOPRIL (LISINOPRIL) [Concomitant]

REACTIONS (4)
  - Bradycardia [None]
  - Malaise [None]
  - Fatigue [None]
  - Drug interaction [None]
